FAERS Safety Report 13030773 (Version 3)
Quarter: 2017Q1

REPORT INFORMATION
  Report Type: Spontaneous
  Country: TR (occurrence: TR)
  Receive Date: 20161215
  Receipt Date: 20170111
  Transmission Date: 20170428
  Serious: Yes (Death, Other)
  Sender: FDA-Public Use
  Company Number: TR-GILEAD-2016-0248163

PATIENT
  Age: 57 Year
  Sex: Male
  Weight: 55 kg

DRUGS (4)
  1. HARVONI [Suspect]
     Active Substance: LEDIPASVIR\SOFOSBUVIR
     Indication: HEPATITIS C
     Dosage: 1 DF, QD
     Route: 048
     Dates: start: 20160804, end: 20161125
  2. ZESTAT                             /01293201/ [Concomitant]
     Indication: ANXIETY
     Dosage: 1 DF, QD
     Route: 048
     Dates: start: 20150906, end: 20161125
  3. VELORIN [Concomitant]
     Indication: ANXIETY
     Dosage: 1 DF, QD
     Route: 048
     Dates: start: 20161121
  4. PROZAC [Concomitant]
     Active Substance: FLUOXETINE HYDROCHLORIDE
     Indication: ANXIETY
     Dosage: 1 DF, QD
     Route: 048
     Dates: start: 20161121

REACTIONS (1)
  - Shock hypoglycaemic [Fatal]

NARRATIVE: CASE EVENT DATE: 20161125
